FAERS Safety Report 6272183-2 (Version None)
Quarter: 2009Q3

REPORT INFORMATION
  Report Type: 
  Country: None (occurrence: None)
  Receive Date: 20090717
  Receipt Date: 20090709
  Transmission Date: 20100115
  Serious: Yes (Death)
  Sender: FDA-Public Use
  Company Number: GB-BRISTOL-MYERS SQUIBB COMPANY-14696488

PATIENT
  Age: 17 Year
  Sex: Male

DRUGS (4)
  1. STAVUDINE [Suspect]
     Indication: HIV INFECTION
  2. NEVIRAPINE [Suspect]
     Indication: HIV INFECTION
  3. FLUCONAZOLE [Suspect]
     Indication: MENINGITIS CRYPTOCOCCAL
     Dosage: STARTED 400MGBID 8W, MAINTENANCE DOSE 400MG OD.INCREASED TO 800MG OD FOR 2W,FOLLOWED BY 400MG OD
     Route: 048
  4. LAMIVUDINE [Suspect]
     Indication: HIV INFECTION

REACTIONS (3)
  - DISSEMINATED CRYPTOCOCCOSIS [None]
  - IMMUNE RECONSTITUTION SYNDROME [None]
  - MENINGITIS CRYPTOCOCCAL [None]
